FAERS Safety Report 4469769-4 (Version None)
Quarter: 2004Q3

REPORT INFORMATION
  Report Type: 
  Country: None (occurrence: None)
  Receive Date: 20040920
  Receipt Date: 20040817
  Transmission Date: 20050211
  Serious: Yes (Death, Other)
  Sender: FDA-Public Use
  Company Number: A-US2003-02782

PATIENT
  Age: 41 Year
  Sex: Male

DRUGS (4)
  1. TRACLEER [Suspect]
     Indication: PULMONARY HYPERTENSION
     Dosage: 125 MG, BID, ORAL
     Route: 048
     Dates: end: 20030522
  2. GLUCOPHAGE (METFORMIN HDYROCHLORIDE) [Concomitant]
  3. INSULIN [Concomitant]
  4. GLYBURIDE [Concomitant]

REACTIONS (6)
  - ALANINE AMINOTRANSFERASE INCREASED [None]
  - ASPARTATE AMINOTRANSFERASE INCREASED [None]
  - BLOOD GLUCOSE INCREASED [None]
  - DEATH [None]
  - LIVER FUNCTION TEST ABNORMAL [None]
  - VENOUS PRESSURE JUGULAR INCREASED [None]
